FAERS Safety Report 4908807-9 (Version None)
Quarter: 2006Q1

REPORT INFORMATION
  Report Type: 
  Country: None (occurrence: None)
  Receive Date: 20060210
  Receipt Date: 20051129
  Transmission Date: 20060701
  Serious: No
  Sender: FDA-Public Use
  Company Number: US-GLAXOSMITHKLINE-A0583845A

PATIENT
  Age: 64 Year
  Sex: Female

DRUGS (2)
  1. PAXIL CR [Suspect]
     Indication: DEPRESSION
     Dosage: 25MG PER DAY
     Route: 048
     Dates: start: 20051125
  2. ATIVAN [Concomitant]

REACTIONS (6)
  - BEDRIDDEN [None]
  - DEPRESSION [None]
  - FATIGUE [None]
  - LISTLESS [None]
  - NAUSEA [None]
  - PYREXIA [None]
